FAERS Safety Report 10059800 (Version 2)
Quarter: 2014Q2

REPORT INFORMATION
  Report Type: Report from Study
  Country: CL (occurrence: CL)
  Receive Date: 20140404
  Receipt Date: 20140411
  Transmission Date: 20141212
  Serious: Yes (Other)
  Sender: FDA-Public Use
  Company Number: CL-ABBVIE-14P-034-1218481-00

PATIENT
  Age: 35 Year
  Sex: Female

DRUGS (3)
  1. KALETRA [Suspect]
     Indication: HIV INFECTION
     Route: 048
     Dates: start: 20130930
  2. EPIVIR [Concomitant]
     Indication: HIV INFECTION
     Route: 048
     Dates: start: 20130930
  3. RETROVIR [Concomitant]
     Indication: HIV INFECTION
     Route: 048
     Dates: start: 20130930

REACTIONS (1)
  - Abortion induced [Unknown]
